FAERS Safety Report 23880118 (Version 1)
Quarter: 2024Q2

REPORT INFORMATION
  Report Type: Spontaneous
  Country: US (occurrence: US)
  Receive Date: 20240521
  Receipt Date: 20240521
  Transmission Date: 20240716
  Serious: No
  Sender: FDA-Public Use
  Company Number: US-GALDERMA-US2024007816

PATIENT

DRUGS (6)
  1. PROACTIV MD ADAPALENE ACNE TREATMENT [Suspect]
     Active Substance: ADAPALENE
     Indication: Acne
     Dosage: 1 DOSAGE FORM
     Route: 061
     Dates: end: 2024
  2. Proactiv MD Ultra Gentle Cleanser [Concomitant]
     Indication: Acne
     Dosage: 1 DOSAGE FORM
     Route: 061
     Dates: end: 2024
  3. COSMETICS [Concomitant]
     Active Substance: COSMETICS
     Indication: Acne
     Dosage: 1 DOSAGE FORM
     Route: 061
     Dates: end: 2024
  4. COSMETICS [Concomitant]
     Active Substance: COSMETICS
     Indication: Acne
     Dosage: 1 DOSAGE FORM
     Route: 061
     Dates: end: 2024
  5. PROACTIV EMERGENCY BLEMISH RELIEF [Concomitant]
     Active Substance: BENZOYL PEROXIDE
     Indication: Acne
     Dosage: 1 DOSAGE FORM
     Route: 061
     Dates: end: 2024
  6. Proactiv Zits Happen Patches [Concomitant]
     Indication: Acne
     Dosage: 1 DOSAGE FORM
     Route: 061
     Dates: end: 2024

REACTIONS (6)
  - Erythema [Unknown]
  - Skin burning sensation [Unknown]
  - Acne [Unknown]
  - Blister [Unknown]
  - Skin injury [Unknown]
  - Drug ineffective [Unknown]
